FAERS Safety Report 12297536 (Version 1)
Quarter: 2016Q2

REPORT INFORMATION
  Report Type: Spontaneous
  Country: AU (occurrence: AU)
  Receive Date: 20160422
  Receipt Date: 20160422
  Transmission Date: 20160815
  Serious: Yes (Other)
  Sender: FDA-Public Use
  Company Number: AU-MEDA-2016040062

PATIENT
  Age: 35 Year
  Sex: Male

DRUGS (1)
  1. AZEP NASAL SPRAY 0.1% (BATCH: 3730611) [Suspect]
     Active Substance: AZELASTINE HYDROCHLORIDE
     Indication: RHINITIS ALLERGIC
     Route: 045
     Dates: start: 20160414, end: 20160414

REACTIONS (2)
  - Palpitations [Unknown]
  - Angina pectoris [Unknown]

NARRATIVE: CASE EVENT DATE: 20160414
